FAERS Safety Report 4748228-5 (Version None)
Quarter: 2005Q3

REPORT INFORMATION
  Report Type: 
  Country: None (occurrence: None)
  Receive Date: 20050818
  Receipt Date: 20050609
  Transmission Date: 20060218
  Serious: Yes (Other)
  Sender: FDA-Public Use
  Company Number: PHEH2005US06615

PATIENT
  Age: 76 Year
  Sex: Male

DRUGS (5)
  1. ZOMETA [Suspect]
     Indication: METASTASES TO BONE
     Dosage: 3.5 MG EVERY MONTH
     Route: 042
     Dates: start: 20030414, end: 20050511
  2. ATENOLOL [Concomitant]
     Indication: BLOOD PRESSURE INCREASED
     Dosage: 100 MG, QD
  3. MULTI-VITAMINS [Concomitant]
     Dosage: UNK, QD
  4. MAXZIDE [Concomitant]
  5. AMOXICILLIN [Concomitant]
     Dosage: 7 DAYS

REACTIONS (5)
  - ASEPTIC NECROSIS BONE [None]
  - DENTAL TREATMENT [None]
  - JAW DISORDER [None]
  - PAIN IN JAW [None]
  - RENAL IMPAIRMENT [None]
